FAERS Safety Report 11302119 (Version 2)
Quarter: 2015Q3

REPORT INFORMATION
  Report Type: Spontaneous
  Country: US (occurrence: None)
  Receive Date: 20150723
  Receipt Date: 20150825
  Transmission Date: 20151125
  Serious: Yes (Hospitalization, Other)
  Sender: FDA-Public Use
  Company Number: US-2015CRT000339

PATIENT
  Age: 27 Year
  Sex: Female
  Weight: 115.6 kg

DRUGS (10)
  1. SYNTHROID [Concomitant]
     Active Substance: LEVOTHYROXINE SODIUM
  2. CO Q10 (UBIDECARENONE) [Concomitant]
  3. LANTUS [Concomitant]
     Active Substance: INSULIN GLARGINE
  4. KORLYM [Suspect]
     Active Substance: MIFEPRISTONE
     Indication: CUSHING^S SYNDROME
     Route: 048
     Dates: start: 20131212
  5. METFORMIN [Concomitant]
     Active Substance: METFORMIN HYDROCHLORIDE
  6. POTASSIUM CITRATE. [Concomitant]
     Active Substance: POTASSIUM CITRATE
  7. INSULIN [Concomitant]
     Active Substance: INSULIN NOS
  8. KRILL OIL (FISH OIL) [Concomitant]
  9. LISINOPRIL. [Concomitant]
     Active Substance: LISINOPRIL
  10. VITAMIN D (ERGOCALCIFEROL) [Concomitant]
     Active Substance: ERGOCALCIFEROL

REACTIONS (21)
  - Presyncope [None]
  - Endometrial hypertrophy [None]
  - Decreased appetite [None]
  - Insomnia [None]
  - Nocturia [None]
  - Fatigue [None]
  - Nausea [None]
  - Incorrect dosage administered [None]
  - Vaginal haemorrhage [None]
  - Hot flush [None]
  - Blood glucose decreased [None]
  - Hypotension [None]
  - Glycosylated haemoglobin decreased [None]
  - Myalgia [None]
  - Dysgeusia [None]
  - Back pain [None]
  - Anaemia [None]
  - Weight decreased [None]
  - Hepatic enzyme increased [None]
  - Somnolence [None]
  - Dizziness [None]

NARRATIVE: CASE EVENT DATE: 201312
